FAERS Safety Report 4863932-6 (Version None)
Quarter: 2005Q4

REPORT INFORMATION
  Report Type: 
  Country: None (occurrence: None)
  Receive Date: 20051222
  Receipt Date: 20051214
  Transmission Date: 20060501
  Serious: Yes (Other)
  Sender: FDA-Public Use
  Company Number: US-JNJFOC-20051004114

PATIENT
  Sex: Female
  Weight: 69.85 kg

DRUGS (8)
  1. REMICADE [Suspect]
     Indication: ANKYLOSING SPONDYLITIS
     Dosage: FIRST INFUSION
     Route: 042
  2. VALIUM [Suspect]
     Indication: DRUG USE FOR UNKNOWN INDICATION
  3. DARVOCET-N 100 [Suspect]
  4. DARVOCET-N 100 [Suspect]
     Indication: DRUG USE FOR UNKNOWN INDICATION
  5. AMBIEN [Suspect]
     Indication: DRUG USE FOR UNKNOWN INDICATION
  6. PREDNISONE TAB [Concomitant]
     Indication: ANKYLOSING SPONDYLITIS
  7. ANALGESICS [Concomitant]
     Indication: ANKYLOSING SPONDYLITIS
  8. NSAIDS [Concomitant]
     Indication: ANKYLOSING SPONDYLITIS

REACTIONS (2)
  - DRUG WITHDRAWAL CONVULSIONS [None]
  - INFUSION RELATED REACTION [None]
